FAERS Safety Report 18214536 (Version 2)
Quarter: 2025Q2

REPORT INFORMATION
  Report Type: Spontaneous
  Country: PT (occurrence: PT)
  Receive Date: 20200831
  Receipt Date: 20250603
  Transmission Date: 20250717
  Serious: Yes (Life-Threatening, Hospitalization, Other)
  Sender: MYLAN
  Company Number: PT-ASTELLAS-2018US055092

PATIENT
  Age: 73 Year
  Sex: Female

DRUGS (44)
  1. HYDROCORTISONE [Suspect]
     Active Substance: HYDROCORTISONE
     Indication: Anaphylactic shock
  2. HYDROCORTISONE [Suspect]
     Active Substance: HYDROCORTISONE
     Route: 065
  3. HYDROCORTISONE [Suspect]
     Active Substance: HYDROCORTISONE
     Route: 065
  4. HYDROCORTISONE [Suspect]
     Active Substance: HYDROCORTISONE
  5. AMOXICILLIN\CLAVULANIC ACID [Suspect]
     Active Substance: AMOXICILLIN\CLAVULANIC ACID
     Indication: Pneumonia
  6. AMOXICILLIN\CLAVULANIC ACID [Suspect]
     Active Substance: AMOXICILLIN\CLAVULANIC ACID
  7. AMOXICILLIN\CLAVULANIC ACID [Suspect]
     Active Substance: AMOXICILLIN\CLAVULANIC ACID
     Route: 042
  8. AMOXICILLIN\CLAVULANIC ACID [Suspect]
     Active Substance: AMOXICILLIN\CLAVULANIC ACID
     Route: 042
  9. AMOXICILLIN\CLAVULANIC ACID [Suspect]
     Active Substance: AMOXICILLIN\CLAVULANIC ACID
  10. AMOXICILLIN\CLAVULANIC ACID [Suspect]
     Active Substance: AMOXICILLIN\CLAVULANIC ACID
  11. AMOXICILLIN\CLAVULANIC ACID [Suspect]
     Active Substance: AMOXICILLIN\CLAVULANIC ACID
     Route: 042
  12. AMOXICILLIN\CLAVULANIC ACID [Suspect]
     Active Substance: AMOXICILLIN\CLAVULANIC ACID
     Route: 042
  13. CLEMASTINE [Suspect]
     Active Substance: CLEMASTINE
     Indication: Anaphylactic shock
  14. CLEMASTINE [Suspect]
     Active Substance: CLEMASTINE
     Route: 065
  15. CLEMASTINE [Suspect]
     Active Substance: CLEMASTINE
     Route: 065
  16. CLEMASTINE [Suspect]
     Active Substance: CLEMASTINE
  17. INSULIN NOS [Concomitant]
     Active Substance: INSULIN NOS
     Indication: Type 2 diabetes mellitus
  18. INSULIN NOS [Concomitant]
     Active Substance: INSULIN NOS
     Route: 065
  19. INSULIN NOS [Concomitant]
     Active Substance: INSULIN NOS
     Route: 065
  20. INSULIN NOS [Concomitant]
     Active Substance: INSULIN NOS
  21. FLUOXETINE [Concomitant]
     Active Substance: FLUOXETINE HYDROCHLORIDE
  22. FLUOXETINE [Concomitant]
     Active Substance: FLUOXETINE HYDROCHLORIDE
     Route: 065
  23. FLUOXETINE [Concomitant]
     Active Substance: FLUOXETINE HYDROCHLORIDE
     Route: 065
  24. FLUOXETINE [Concomitant]
     Active Substance: FLUOXETINE HYDROCHLORIDE
  25. OMEPRAZOLE [Concomitant]
     Active Substance: OMEPRAZOLE
  26. OMEPRAZOLE [Concomitant]
     Active Substance: OMEPRAZOLE
     Route: 065
  27. OMEPRAZOLE [Concomitant]
     Active Substance: OMEPRAZOLE
     Route: 065
  28. OMEPRAZOLE [Concomitant]
     Active Substance: OMEPRAZOLE
  29. METFORMIN\SITAGLIPTIN [Concomitant]
     Active Substance: METFORMIN\SITAGLIPTIN
  30. METFORMIN\SITAGLIPTIN [Concomitant]
     Active Substance: METFORMIN\SITAGLIPTIN
     Route: 065
  31. METFORMIN\SITAGLIPTIN [Concomitant]
     Active Substance: METFORMIN\SITAGLIPTIN
     Route: 065
  32. METFORMIN\SITAGLIPTIN [Concomitant]
     Active Substance: METFORMIN\SITAGLIPTIN
  33. AMLODIPINE [Concomitant]
     Active Substance: AMLODIPINE BESYLATE
  34. AMLODIPINE [Concomitant]
     Active Substance: AMLODIPINE BESYLATE
     Route: 065
  35. AMLODIPINE [Concomitant]
     Active Substance: AMLODIPINE BESYLATE
     Route: 065
  36. AMLODIPINE [Concomitant]
     Active Substance: AMLODIPINE BESYLATE
  37. FUROSEMIDE [Concomitant]
     Active Substance: FUROSEMIDE
  38. FUROSEMIDE [Concomitant]
     Active Substance: FUROSEMIDE
     Route: 065
  39. FUROSEMIDE [Concomitant]
     Active Substance: FUROSEMIDE
     Route: 065
  40. FUROSEMIDE [Concomitant]
     Active Substance: FUROSEMIDE
  41. ATORVASTATIN [Concomitant]
     Active Substance: ATORVASTATIN
  42. ATORVASTATIN [Concomitant]
     Active Substance: ATORVASTATIN
     Route: 065
  43. ATORVASTATIN [Concomitant]
     Active Substance: ATORVASTATIN
     Route: 065
  44. ATORVASTATIN [Concomitant]
     Active Substance: ATORVASTATIN

REACTIONS (12)
  - Anaphylactic shock [Recovering/Resolving]
  - Arteriosclerosis [Recovering/Resolving]
  - Shock [Recovering/Resolving]
  - Electrocardiogram ST segment elevation [Recovered/Resolved]
  - Disease progression [Unknown]
  - Drug ineffective [Unknown]
  - Anaphylactic reaction [Recovering/Resolving]
  - Cardio-respiratory arrest [Recovering/Resolving]
  - Kounis syndrome [Recovering/Resolving]
  - Arteriospasm coronary [Recovering/Resolving]
  - Altered state of consciousness [Recovering/Resolving]
  - Rash [Recovering/Resolving]
